FAERS Safety Report 7619019-2 (Version None)
Quarter: 2011Q3

REPORT INFORMATION
  Report Type: 
  Country: None (occurrence: None)
  Receive Date: 20110718
  Receipt Date: 20110707
  Transmission Date: 20111222
  Serious: Yes (Other)
  Sender: FDA-Public Use
  Company Number: CN-ASTRAZENECA-2011SE40638

PATIENT

DRUGS (3)
  1. PHENOBARBITAL TAB [Concomitant]
     Dosage: 0.1 G
     Route: 030
  2. LIDOCAINE [Suspect]
     Indication: ANAESTHESIA
     Route: 053
  3. ATROPINE [Concomitant]
     Dosage: 0.5 MG

REACTIONS (1)
  - MUSCLE SPASMS [None]
